FAERS Safety Report 17481854 (Version 1)
Quarter: 2020Q1

REPORT INFORMATION
  Report Type: Spontaneous
  Country: US (occurrence: US)
  Receive Date: 20200302
  Receipt Date: 20200302
  Transmission Date: 20200409
  Serious: Yes (Other)
  Sender: FDA-Public Use
  Company Number: US-GW PHARMA-202002USGW00718

PATIENT

DRUGS (4)
  1. BRIVIACT [Suspect]
     Active Substance: BRIVARACETAM
     Indication: PRODUCT USED FOR UNKNOWN INDICATION
     Dosage: UNK
     Route: 065
     Dates: start: 202001
  2. ZONEGRAN [Suspect]
     Active Substance: ZONISAMIDE
     Indication: PRODUCT USED FOR UNKNOWN INDICATION
     Dosage: UNK
     Route: 065
     Dates: end: 202002
  3. ZONEGRAN [Suspect]
     Active Substance: ZONISAMIDE
     Dosage: 350 MILLIGRAM, QD (AT NIGHT)
     Route: 065
     Dates: start: 202002
  4. EPIDIOLEX [Suspect]
     Active Substance: CANNABIDIOL
     Indication: IDIOPATHIC GENERALISED EPILEPSY
     Dosage: 220 MILLIGRAM, BID
     Route: 048
     Dates: start: 20190327

REACTIONS (4)
  - Paranoia [Unknown]
  - Dyskinesia [Unknown]
  - Product use in unapproved indication [Not Recovered/Not Resolved]
  - Tardive dyskinesia [Unknown]

NARRATIVE: CASE EVENT DATE: 20190327
